FAERS Safety Report 5223057-7 (Version None)
Quarter: 2007Q1

REPORT INFORMATION
  Report Type: 
  Country: None (occurrence: None)
  Receive Date: 20070129
  Receipt Date: 20070119
  Transmission Date: 20070707
  Serious: Yes (Hospitalization, Other)
  Sender: FDA-Public Use
  Company Number: US-MERCK-0606USA03678

PATIENT
  Sex: Male

DRUGS (17)
  1. ZOCOR [Suspect]
     Route: 048
     Dates: end: 20060301
  2. BACLOFEN [Concomitant]
     Route: 048
  3. ACETAMINOPHEN AND PROPOXYPHENE HYDROCHLORIDE [Concomitant]
     Route: 048
  4. ALBUTEROL [Concomitant]
  5. GLIPIZIDE [Concomitant]
     Route: 048
  6. GLIPIZIDE [Concomitant]
     Route: 048
  7. LEVOXYL [Concomitant]
     Route: 048
  8. LEVOXYL [Concomitant]
     Route: 048
  9. LEVOXYL [Concomitant]
     Route: 048
  10. MECLIZINE HYDROCHLORIDE [Concomitant]
     Route: 048
  11. TRAZODONE HYDROCHLORIDE [Concomitant]
     Route: 048
  12. LEXAPRO [Concomitant]
     Route: 048
  13. CELEXA [Concomitant]
     Route: 048
  14. CELEXA [Concomitant]
     Route: 048
  15. CELEXA [Concomitant]
     Route: 048
  16. DIGOXIN [Concomitant]
     Route: 048
  17. FLURAZEPAM HYDROCHLORIDE [Concomitant]
     Route: 065

REACTIONS (2)
  - CEREBRAL INFARCTION [None]
  - RHABDOMYOLYSIS [None]
